FAERS Safety Report 10064578 (Version 1)
Quarter: 2014Q2

REPORT INFORMATION
  Report Type: Spontaneous
  Country: US (occurrence: None)
  Receive Date: 20140407
  Receipt Date: 20140407
  Transmission Date: 20141212
  Serious: Yes (Other)
  Sender: FDA-Public Use
  Company Number: None

PATIENT
  Age: 24 Year
  Sex: Female
  Weight: 65.77 kg

DRUGS (1)
  1. MIRVASO, GALDERMA [Suspect]
     Indication: ROSACEA
     Dosage: 5 PEA SIZED AMOUNTS, APPLIED TO A SURFACE, USUALLY THE SKIN
     Dates: start: 20140314, end: 20140406

REACTIONS (5)
  - Skin exfoliation [None]
  - Sunburn [None]
  - Flushing [None]
  - Erythema [None]
  - Feeling hot [None]
